FAERS Safety Report 9017063 (Version 2)
Quarter: 2013Q1

REPORT INFORMATION
  Report Type: Spontaneous
  Country: NL (occurrence: NL)
  Receive Date: 20130117
  Receipt Date: 20130206
  Transmission Date: 20140127
  Serious: Yes (Hospitalization)
  Sender: FDA-Public Use
  Company Number: PHHY2013NL004192

PATIENT
  Age: 86 Year
  Sex: Male

DRUGS (3)
  1. ZOMETA [Suspect]
     Indication: PROSTATE CANCER METASTATIC
     Dosage: 4 MG/ 100ML, 1X PER 28 DAYS
  2. ZOMETA [Suspect]
     Dosage: 4 MG/ 100ML, 1X PER 28 DAYS
     Dates: start: 20111216
  3. ZOMETA [Suspect]
     Dosage: 4 MG/ 100ML, 1X PER 28 DAYS
     Dates: start: 20121210

REACTIONS (2)
  - Abdominal discomfort [Not Recovered/Not Resolved]
  - General physical health deterioration [Unknown]
